FAERS Safety Report 8872668 (Version 1)
Quarter: 2012Q4

REPORT INFORMATION
  Report Type: 
  Country: US (occurrence: US)
  Receive Date: 20121026
  Receipt Date: 20121026
  Transmission Date: 20130627
  Serious: No
  Sender: FDA-Public Use
  Company Number: US-AMGEN-USASP2012051076

PATIENT
  Sex: Male
  Weight: 90.7 kg

DRUGS (11)
  1. ENBREL [Suspect]
     Indication: PRODUCT USED FOR UNKNOWN INDICATION
     Dosage: 50 mg, qwk
     Route: 058
  2. PAXIL [Concomitant]
     Dosage: 10 mg, UNK
  3. LACTAID [Concomitant]
     Dosage: 3000 unit, UNK
  4. RAMIPRIL [Concomitant]
     Dosage: 10 mg, UNK
  5. METHOTREXATE [Concomitant]
     Dosage: 2.5 mg, UNK
  6. FOLIC ACID [Concomitant]
     Dosage: 1 mg, UNK
  7. LEVOTHYROXIN [Concomitant]
     Dosage: 137 MCG
  8. TEA, GREEN [Concomitant]
     Dosage: 250 mg, UNK
  9. MULTIVITAMIN                       /00097801/ [Concomitant]
     Dosage: UNK
  10. SAW PALMETTO                       /00833501/ [Concomitant]
     Dosage: UNK
  11. OMEGA                              /00661201/ [Concomitant]
     Dosage: UNK

REACTIONS (1)
  - Nasopharyngitis [Unknown]
